FAERS Safety Report 4974567-9 (Version None)
Quarter: 2006Q1

REPORT INFORMATION
  Report Type: 
  Country: None (occurrence: None)
  Receive Date: 20060215
  Receipt Date: 20050419
  Transmission Date: 20060701
  Serious: Yes (Other)
  Sender: FDA-Public Use
  Company Number: PROG00205001290

PATIENT
  Age: 66 Year
  Sex: Female

DRUGS (5)
  1. PROMETRIUM [Suspect]
     Indication: HORMONE REPLACEMENT THERAPY
     Dosage: DAILY ORAL
     Route: 048
     Dates: start: 19990601, end: 20020701
  2. ESTRATAB [Suspect]
     Indication: HORMONE REPLACEMENT THERAPY
     Dosage: UNKNOWN DAILY ORAL
     Route: 048
     Dates: start: 19990601, end: 20020701
  3. PREMARIN [Suspect]
     Indication: HORMONE REPLACEMENT THERAPY
     Dosage: UNKNOWN DAILY ORAL
     Route: 048
     Dates: start: 19880501, end: 19940801
  4. PROVERA [Suspect]
     Indication: HORMONE REPLACEMENT THERAPY
     Dosage: UNKNOWN DAILY ORAL
     Route: 048
     Dates: start: 19880501, end: 19940801
  5. PREMPRO [Suspect]
     Indication: HORMONE REPLACEMENT THERAPY
     Dosage: UNKNOWN DAILY ORAL
     Route: 048
     Dates: start: 19960901, end: 19990601

REACTIONS (1)
  - BREAST CANCER [None]
